FAERS Safety Report 16433323 (Version 1)
Quarter: 2019Q2

REPORT INFORMATION
  Report Type: Spontaneous
  Country: US (occurrence: US)
  Receive Date: 20190614
  Receipt Date: 20190614
  Transmission Date: 20190711
  Serious: No
  Sender: FDA-Public Use
  Company Number: US-JNJFOC-20190615034

PATIENT
  Age: 67 Year
  Sex: Male

DRUGS (1)
  1. IMBRUVICA [Suspect]
     Active Substance: IBRUTINIB
     Indication: CHRONIC LYMPHOCYTIC LEUKAEMIA
     Route: 048
     Dates: start: 201905

REACTIONS (4)
  - Photophobia [Recovering/Resolving]
  - Vision blurred [Recovering/Resolving]
  - Pain in extremity [Unknown]
  - Mydriasis [Recovering/Resolving]

NARRATIVE: CASE EVENT DATE: 201905
